FAERS Safety Report 7817173-0 (Version None)
Quarter: 2011Q4

REPORT INFORMATION
  Report Type: 
  Country: None (occurrence: None)
  Receive Date: 20111017
  Receipt Date: 20111017
  Transmission Date: 20120403
  Serious: No
  Sender: FDA-Public Use
  Company Number: None

PATIENT
  Age: 70 Year
  Sex: Female
  Weight: 71.667 kg

DRUGS (1)
  1. AZITHROMYCIN [Suspect]
     Indication: ADVERSE DRUG REACTION
     Dosage: LONG ACTING
     Route: 048
     Dates: start: 20100716, end: 20100726

REACTIONS (4)
  - INSOMNIA [None]
  - ARTHRITIS [None]
  - BURNING SENSATION [None]
  - DEHYDRATION [None]
